FAERS Safety Report 16918806 (Version 1)
Quarter: 2019Q4

REPORT INFORMATION
  Report Type: Report from Study
  Country: JP (occurrence: JP)
  Receive Date: 20191015
  Receipt Date: 20191015
  Transmission Date: 20200122
  Serious: Yes (Other)
  Sender: FDA-Public Use
  Company Number: JP-ASTRAZENECA-2019SE33572

PATIENT
  Age: 79 Year
  Sex: Male

DRUGS (12)
  1. VESICARE [Concomitant]
     Active Substance: SOLIFENACIN SUCCINATE
  2. ONGLYZA [Suspect]
     Active Substance: SAXAGLIPTIN HYDROCHLORIDE
     Indication: TYPE 2 DIABETES MELLITUS
     Route: 048
     Dates: start: 20140729
  3. MOHRUS L [Concomitant]
     Active Substance: KETOPROFEN
  4. ADALAT [Concomitant]
     Active Substance: NIFEDIPINE
  5. BAYASPIRIN [Concomitant]
     Active Substance: ASPIRIN
  6. BI SIFROL [Concomitant]
     Active Substance: PRAMIPEXOLE
  7. MICARDIS [Concomitant]
     Active Substance: TELMISARTAN
     Route: 048
  8. HERBESSER [Concomitant]
     Active Substance: DILTIAZEM HYDROCHLORIDE
  9. NOVORAPID [Concomitant]
     Active Substance: INSULIN ASPART
     Dates: start: 20141021
  10. CELECOX [Concomitant]
     Active Substance: CELECOXIB
  11. MUCOSTA [Concomitant]
     Active Substance: REBAMIPIDE
     Route: 048
  12. DEPAS [Concomitant]
     Route: 048

REACTIONS (1)
  - Diabetic nephropathy [Not Recovered/Not Resolved]

NARRATIVE: CASE EVENT DATE: 20150525
